FAERS Safety Report 24986824 (Version 1)
Quarter: 2025Q1

REPORT INFORMATION
  Report Type: Report from Study
  Country: US (occurrence: US)
  Receive Date: 20250219
  Receipt Date: 20250219
  Transmission Date: 20250409
  Serious: Yes (Other)
  Sender: ABBVIE
  Company Number: US-ABBVIE-6132069

PATIENT
  Sex: Female

DRUGS (1)
  1. HUMIRA [Suspect]
     Active Substance: ADALIMUMAB
     Indication: Psoriatic arthropathy
     Dosage: CITRATE FREE?FORM STRENGTH: 40 MILLIGRAMS
     Route: 058

REACTIONS (8)
  - Spinal osteoarthritis [Unknown]
  - Memory impairment [Unknown]
  - Spondylitis [Recovering/Resolving]
  - Scoliosis [Recovering/Resolving]
  - Arthritis [Recovered/Resolved with Sequelae]
  - Musculoskeletal disorder [Recovering/Resolving]
  - Back disorder [Unknown]
  - Arthralgia [Unknown]
